FAERS Safety Report 6136738-8 (Version None)
Quarter: 2009Q1

REPORT INFORMATION
  Report Type: 
  Country: None (occurrence: None)
  Receive Date: 20090325
  Receipt Date: 20090312
  Transmission Date: 20090719
  Serious: Yes (Other)
  Sender: FDA-Public Use
  Company Number: A-NJ2009-23866

PATIENT
  Age: 67 Year
  Sex: Female
  Weight: 136.1 kg

DRUGS (2)
  1. VENTAVIS [Suspect]
     Indication: PULMONARY ARTERIAL HYPERTENSION
     Dosage: 2.5 UG, RESPIRATORY
     Route: 055
     Dates: start: 20081126, end: 20090201
  2. DURAGESIC-100 [Suspect]
     Dosage: 25 MG, TRANSDERMAL
     Route: 062
     Dates: start: 20080101

REACTIONS (2)
  - DYSPNOEA [None]
  - HALLUCINATION [None]
